FAERS Safety Report 17252488 (Version 4)
Quarter: 2020Q1

REPORT INFORMATION
  Report Type: Spontaneous
  Country: US (occurrence: US)
  Receive Date: 20200109
  Receipt Date: 20200213
  Transmission Date: 20200409
  Serious: No
  Sender: FDA-Public Use
  Company Number: US-009507513-2001USA000950

PATIENT
  Age: 48 Year
  Sex: Female
  Weight: 76.64 kg

DRUGS (1)
  1. NUVARING [Suspect]
     Active Substance: ETHINYL ESTRADIOL\ETONOGESTREL
     Indication: CONTRACEPTION
     Dosage: 1 RING, QM
     Route: 067
     Dates: start: 2013, end: 20200102

REACTIONS (6)
  - Accidental underdose [Unknown]
  - Inappropriate schedule of product administration [Unknown]
  - Device expulsion [Unknown]
  - Incorrect product administration duration [Unknown]
  - Product quality issue [Unknown]
  - No adverse event [Unknown]

NARRATIVE: CASE EVENT DATE: 202001
